FAERS Safety Report 15984638 (Version 1)
Quarter: 2019Q1

REPORT INFORMATION
  Report Type: Spontaneous
  Country: US (occurrence: US)
  Receive Date: 20190125
  Receipt Date: 20190125
  Transmission Date: 20190418
  Serious: No
  Sender: FDA-Public Use
  Company Number: None

PATIENT
  Age: 47 Year
  Sex: Female

DRUGS (8)
  1. ZOLPID [Concomitant]
  2. TRAMADOL. [Concomitant]
     Active Substance: TRAMADOL
  3. REBIF [Suspect]
     Active Substance: INTERFERON BETA-1A
     Indication: MULTIPLE SCLEROSIS
     Route: 058
     Dates: start: 20181031
  4. HYDROCO/APAP [Concomitant]
     Active Substance: ACETAMINOPHEN\HYDROCODONE
  5. GABAPENTIN. [Concomitant]
     Active Substance: GABAPENTIN
  6. WARFARIN [Concomitant]
     Active Substance: WARFARIN
  7. XARELTO [Concomitant]
     Active Substance: RIVAROXABAN
  8. VENLAFAXINE [Concomitant]
     Active Substance: VENLAFAXINE HYDROCHLORIDE

REACTIONS (5)
  - Viral sepsis [None]
  - Dizziness [None]
  - Abdominal discomfort [None]
  - Syncope [None]
  - Fatigue [None]

NARRATIVE: CASE EVENT DATE: 20190107
